FAERS Safety Report 9291266 (Version 2)
Quarter: 2013Q2

REPORT INFORMATION
  Report Type: Spontaneous
  Country: TN (occurrence: None)
  Receive Date: 20130513
  Receipt Date: 20130513
  Transmission Date: 20140414
  Serious: Yes (Other)
  Sender: FDA-Public Use
  Company Number: KAD201305-000512

PATIENT
  Age: 56 Year
  Sex: Male

DRUGS (2)
  1. AMPHOTERICIN B [Suspect]
     Indication: ZYGOMYCOSIS
     Dosage: 1MG/KG (CUMULATIVE DOSE)
  2. INSULIN (INSULIN) [Concomitant]

REACTIONS (2)
  - Renal failure [None]
  - Diabetic ketoacidosis [None]
